FAERS Safety Report 9687048 (Version 2)
Quarter: 2013Q4

REPORT INFORMATION
  Report Type: Spontaneous
  Country: TW (occurrence: TW)
  Receive Date: 20131113
  Receipt Date: 20131120
  Transmission Date: 20140711
  Serious: Yes (Death, Hospitalization, Other)
  Sender: FDA-Public Use
  Company Number: TW-009507513-1311TWN002594

PATIENT
  Age: 69 Year
  Sex: Female

DRUGS (7)
  1. PEG-INTRON [Suspect]
     Indication: CHRONIC HEPATITIS C
     Dosage: 100 MICROGRAM, QW
     Route: 058
     Dates: start: 20130621, end: 20131031
  2. BOCEPREVIR [Suspect]
     Indication: CHRONIC HEPATITIS C
     Dosage: 800 MG, TID
     Route: 048
     Dates: start: 20130719, end: 20131031
  3. RIBAVIRIN [Suspect]
     Indication: CHRONIC HEPATITIS C
     Dosage: UNK
     Route: 048
     Dates: start: 20130807, end: 20131031
  4. RIBAVIRIN [Suspect]
     Dosage: UNK
     Route: 048
     Dates: start: 20130621, end: 20130806
  5. ELTROMBOPAG OLAMINE [Concomitant]
     Dosage: 25 MG, QOD
     Route: 048
     Dates: start: 20130325, end: 20131031
  6. MOXIFLOXACIN HYDROCHLORIDE [Concomitant]
     Indication: URINARY TRACT INFECTION
     Dosage: UNK
     Dates: start: 20131031, end: 20131106
  7. IMODIUM [Concomitant]
     Indication: DIARRHOEA
     Dosage: UNK
     Dates: start: 20131031, end: 20131106

REACTIONS (10)
  - Death [Fatal]
  - Anaemia [Fatal]
  - Diarrhoea [Fatal]
  - Abdominal pain [Fatal]
  - Jaundice [Fatal]
  - Urinary tract infection [Fatal]
  - Acute pulmonary oedema [Fatal]
  - Multi-organ failure [Fatal]
  - Packed red blood cell transfusion [Fatal]
  - Mechanical ventilation [Fatal]
